FAERS Safety Report 5425834-6 (Version None)
Quarter: 2007Q3

REPORT INFORMATION
  Report Type: 
  Country: None (occurrence: None)
  Receive Date: 20070827
  Receipt Date: 20070822
  Transmission Date: 20080115
  Serious: Yes (Hospitalization)
  Sender: FDA-Public Use
  Company Number: FRWYE176526MAR07

PATIENT
  Sex: Female

DRUGS (7)
  1. EFFEXOR XR [Suspect]
     Indication: DEPRESSION
     Dosage: 75 MG DAILY
     Route: 048
     Dates: start: 20060502, end: 20060607
  2. OMEPRAZOLE [Concomitant]
     Dosage: UNKNOWN
  3. STILNOX [Concomitant]
     Dosage: UNKNOWN
  4. LOXEN [Concomitant]
     Dosage: UNKNOWN
  5. LEXOMIL [Concomitant]
     Dosage: UNKNOWN
  6. CORDARONE [Concomitant]
     Dosage: UNKNOWN
  7. KARDEGIC [Concomitant]
     Dosage: UNKNOWN

REACTIONS (1)
  - HYPOMAGNESAEMIA [None]
